FAERS Safety Report 8473234-7 (Version None)
Quarter: 2012Q2

REPORT INFORMATION
  Report Type: 
  Country: None (occurrence: None)
  Receive Date: 20120627
  Receipt Date: 20120621
  Transmission Date: 20120825
  Serious: Yes (Hospitalization)
  Sender: FDA-Public Use
  Company Number: FR-MERCK-1206FRA00127

PATIENT
  Age: 66 Year
  Sex: Female

DRUGS (9)
  1. LORAZEPAM [Concomitant]
     Route: 065
  2. AMLODIPINE BESYLATE [Concomitant]
     Route: 065
  3. POLYETHYLENE GLYCOL 4000 [Concomitant]
     Route: 065
  4. CLOMIPRAMINE HYDROCHLORIDE [Concomitant]
     Route: 048
  5. JANUMET [Suspect]
     Indication: TYPE 2 DIABETES MELLITUS
     Dosage: 1000/50 MG
     Route: 048
     Dates: start: 20110501
  6. HYDROCHLOROTHIAZIDE AND IRBESARTAN [Concomitant]
     Route: 065
     Dates: start: 20070101
  7. AMOXICILLIN AND CLAVULANATE POTASSIUM [Suspect]
     Indication: URINARY TRACT INFECTION
     Route: 065
  8. URAPIDIL [Concomitant]
     Route: 048
  9. LEVOTHYROXINE SODIUM [Concomitant]
     Route: 048

REACTIONS (1)
  - TUBULOINTERSTITIAL NEPHRITIS [None]
